FAERS Safety Report 18062588 (Version 1)
Quarter: 2020Q3

REPORT INFORMATION
  Report Type: Spontaneous
  Country: FR (occurrence: FR)
  Receive Date: 20200723
  Receipt Date: 20200723
  Transmission Date: 20201103
  Serious: Yes (Other)
  Sender: FDA-Public Use
  Company Number: FR-MYLANLABS-2020M1065973

PATIENT
  Age: 35 Year
  Sex: Male

DRUGS (2)
  1. VALIUM [Concomitant]
     Active Substance: DIAZEPAM
     Dosage: UNK
  2. RISPERIDONE MYLAN [Suspect]
     Active Substance: RISPERIDONE
     Indication: PRODUCT USED FOR UNKNOWN INDICATION
     Dosage: UNK

REACTIONS (5)
  - Fluid retention [Unknown]
  - Sleep apnoea syndrome [Unknown]
  - Neurotransmitter level altered [Unknown]
  - Erectile dysfunction [Unknown]
  - Weight increased [Unknown]
